FAERS Safety Report 13934776 (Version 3)
Quarter: 2017Q4

REPORT INFORMATION
  Report Type: Report from Study
  Country: None (occurrence: US)
  Receive Date: 20170905
  Receipt Date: 20171110
  Transmission Date: 20180320
  Serious: Yes (Other)
  Sender: FDA-Public Use
  Company Number: US-ABBVIE-17K-163-2087089-00

PATIENT
  Sex: Female

DRUGS (1)
  1. HUMIRA [Suspect]
     Active Substance: ADALIMUMAB
     Indication: RHEUMATOID ARTHRITIS
     Route: 058

REACTIONS (7)
  - Cardiac disorder [Unknown]
  - Rheumatoid arthritis [Unknown]
  - Fluid retention [Unknown]
  - Burning sensation [Unknown]
  - Headache [Not Recovered/Not Resolved]
  - Nasopharyngitis [Unknown]
  - Peripheral swelling [Unknown]
